FAERS Safety Report 19503529 (Version 1)
Quarter: 2021Q3

REPORT INFORMATION
  Report Type: Spontaneous
  Country: US (occurrence: GB)
  Receive Date: 20210707
  Receipt Date: 20210707
  Transmission Date: 20211014
  Serious: Yes (Death)
  Sender: FDA-Public Use
  Company Number: GB-BRECKENRIDGE PHARMACEUTICAL, INC.-2113545

PATIENT
  Age: 27 Year
  Sex: Female

DRUGS (2)
  1. OMEPRAZOLE. [Suspect]
     Active Substance: OMEPRAZOLE
     Indication: RENAL FAILURE
  2. TACROLIMUS. [Suspect]
     Active Substance: TACROLIMUS

REACTIONS (7)
  - Brain oedema [None]
  - Blood magnesium decreased [None]
  - Renal impairment [None]
  - Circulatory collapse [None]
  - Drug interaction [None]
  - Acidosis [None]
  - Blood calcium decreased [None]
